FAERS Safety Report 4519818-X (Version None)
Quarter: 2004Q4

REPORT INFORMATION
  Report Type: 
  Country: None (occurrence: None)
  Receive Date: 20041207
  Receipt Date: 20041125
  Transmission Date: 20050328
  Serious: Yes (Hospitalization)
  Sender: FDA-Public Use
  Company Number: CH-JNJFOC-20041106620

PATIENT
  Sex: Female

DRUGS (1)
  1. ACETAMINOPHEN AND TRAMADOL HCL [Suspect]
     Route: 049

REACTIONS (2)
  - LOSS OF CONSCIOUSNESS [None]
  - MALAISE [None]
